FAERS Safety Report 5764068-2 (Version None)
Quarter: 2008Q2

REPORT INFORMATION
  Report Type: 
  Country: None (occurrence: None)
  Receive Date: 20080609
  Receipt Date: 20080507
  Transmission Date: 20081010
  Serious: No
  Sender: FDA-Public Use
  Company Number: 002#1#2008-00390

PATIENT
  Age: 87 Year
  Sex: Female
  Weight: 52.1637 kg

DRUGS (14)
  1. NEUPRO [Suspect]
     Indication: PARKINSON'S DISEASE
     Dosage: SEE IMAGE
     Route: 062
     Dates: start: 20070802, end: 20070809
  2. NEUPRO [Suspect]
     Indication: PARKINSON'S DISEASE
     Dosage: SEE IMAGE
     Route: 062
     Dates: start: 20070809, end: 20070816
  3. NEUPRO [Suspect]
     Indication: PARKINSON'S DISEASE
     Dosage: SEE IMAGE
     Route: 062
     Dates: start: 20070816, end: 20080415
  4. NEUPRO [Suspect]
     Indication: PARKINSON'S DISEASE
     Dosage: SEE IMAGE
     Route: 062
     Dates: start: 20080418, end: 20080421
  5. NEUPRO [Suspect]
     Indication: PARKINSON'S DISEASE
     Dosage: SEE IMAGE
     Route: 062
     Dates: start: 20080422, end: 20080425
  6. ALPRAZOLAM [Suspect]
     Indication: ANXIETY
     Dosage: .5MG, 2 IN 1 D, ORAL
     Route: 048
     Dates: start: 20060801
  7. TRIMETRIN [Concomitant]
  8. POTASSIUM CHLORIDE [Concomitant]
  9. BUSPERIONE [Concomitant]
  10. ASPIRIN [Concomitant]
  11. MULTI-VITAMIN [Concomitant]
  12. CARBIDOPA/LEVODOPA ER [Concomitant]
  13. CARBIDOPA AND LEVODOPA [Concomitant]
  14. MIRTAZAPINE [Concomitant]

REACTIONS (3)
  - ANXIETY [None]
  - ASTHENIA [None]
  - TREMOR [None]
